FAERS Safety Report 5691023-3 (Version None)
Quarter: 2008Q2

REPORT INFORMATION
  Report Type: 
  Country: None (occurrence: None)
  Receive Date: 20080401
  Receipt Date: 20080320
  Transmission Date: 20081010
  Serious: Yes (Other)
  Sender: FDA-Public Use
  Company Number: US-PFIZER INC-2007101192

PATIENT
  Sex: Female
  Weight: 42.6 kg

DRUGS (5)
  1. LYRICA [Suspect]
     Indication: FIBROMYALGIA
     Route: 048
  2. IBUPROFEN [Suspect]
  3. INDOMETHACIN [Suspect]
  4. CYMBALTA [Suspect]
  5. SYNTHROID [Concomitant]

REACTIONS (9)
  - DRUG INEFFECTIVE [None]
  - MIGRAINE [None]
  - MUSCLE SPASMS [None]
  - MUSCLE TWITCHING [None]
  - OFF LABEL USE [None]
  - PAPILLOEDEMA [None]
  - VISUAL DISTURBANCE [None]
  - VISUAL FIELD TESTS ABNORMAL [None]
  - WISDOM TEETH REMOVAL [None]
